FAERS Safety Report 6076344-7 (Version None)
Quarter: 2009Q1

REPORT INFORMATION
  Report Type: 
  Country: None (occurrence: None)
  Receive Date: 20090209
  Receipt Date: 20090202
  Transmission Date: 20090719
  Serious: Yes (Other)
  Sender: FDA-Public Use
  Company Number: 2008AL009956

PATIENT
  Age: 45 Year
  Sex: Female
  Weight: 89.8122 kg

DRUGS (7)
  1. DIGOXIN [Suspect]
     Indication: CARDIAC DISORDER
     Dosage: 0.25MG, DAILY, PO
     Route: 048
     Dates: start: 19940101
  2. HYDRALAZINE HCL [Concomitant]
  3. SPIRONOLACTONE [Concomitant]
  4. LASIX [Concomitant]
  5. COREG [Concomitant]
  6. ASPIRIN [Concomitant]
  7. LISINOPRIL [Concomitant]

REACTIONS (13)
  - ASTHENIA [None]
  - BALANCE DISORDER [None]
  - CARDIAC DISORDER [None]
  - DYSKINESIA [None]
  - HEADACHE [None]
  - LOSS OF CONTROL OF LEGS [None]
  - MUSCULOSKELETAL DISORDER [None]
  - NAUSEA [None]
  - PAIN [None]
  - SLUGGISHNESS [None]
  - UNEVALUABLE EVENT [None]
  - VISUAL ACUITY REDUCED [None]
  - VISUAL IMPAIRMENT [None]
